FAERS Safety Report 9767222 (Version 1)
Quarter: 2013Q4

REPORT INFORMATION
  Report Type: Spontaneous
  Country: US (occurrence: None)
  Receive Date: 20131216
  Receipt Date: 20131216
  Transmission Date: 20140711
  Serious: No
  Sender: FDA-Public Use
  Company Number: None

PATIENT
  Age: 86 Year
  Sex: Female
  Weight: 60.6 kg

DRUGS (3)
  1. WARFARIN [Suspect]
     Indication: ATRIAL FIBRILLATION
  2. ALTEPLASE [Suspect]
     Indication: ACUTE MYOCARDIAL INFARCTION
  3. ALTEPLASE [Suspect]
     Indication: CEREBROVASCULAR ACCIDENT

REACTIONS (4)
  - Gastrointestinal haemorrhage [None]
  - Coronary artery thrombosis [None]
  - Haemoglobin decreased [None]
  - Haematocrit decreased [None]
